FAERS Safety Report 18108705 (Version 2)
Quarter: 2021Q1

REPORT INFORMATION
  Report Type: Spontaneous
  Country: ES (occurrence: ES)
  Receive Date: 20200804
  Receipt Date: 20210318
  Transmission Date: 20210419
  Serious: Yes (Other)
  Sender: FDA-Public Use
  Company Number: ES-ALLERGAN-2028208US

PATIENT
  Sex: Male

DRUGS (7)
  1. HYDROCORTISONE SODIUM PHOSPHATE [Suspect]
     Active Substance: HYDROCORTISONE SODIUM PHOSPHATE
     Indication: BLEPHARITIS
     Dosage: 1 DROP/DAY (NEXT 4 DAYS)
     Route: 047
  2. HYDROCORTISONE SODIUM PHOSPHATE [Suspect]
     Active Substance: HYDROCORTISONE SODIUM PHOSPHATE
     Dosage: 1 DROP/12 HOURS (NEXT 5 DAYS)
     Route: 047
  3. BLEPHADEMODEX [Suspect]
     Active Substance: COSMETICS
     Indication: OPHTHALMOLOGIC TREATMENT
     Dosage: ACTUAL: 1 WIPE IN THE MORNING AND 1 WIPE IN THE NIGHT
     Route: 061
  4. OPTAVA FUSION [Suspect]
     Active Substance: CARBOXYMETHYLCELLULOSE SODIUM
     Indication: EYE LUBRICATION THERAPY
     Dosage: UNK
     Route: 047
  5. HYABAK [Suspect]
     Active Substance: HYALURONATE SODIUM
     Indication: EYE LUBRICATION THERAPY
     Dosage: UNK
     Route: 047
  6. HYDROCORTISONE SODIUM PHOSPHATE [Suspect]
     Active Substance: HYDROCORTISONE SODIUM PHOSPHATE
     Dosage: 1 DROP/8 HOURS (FIRST 5 DAYS)
     Route: 047
  7. AZITHROMYCIN DIHYDRATE. [Suspect]
     Active Substance: AZITHROMYCIN DIHYDRATE
     Indication: BLEPHARITIS
     Dosage: 1 DROP/12 HOURS
     Route: 047

REACTIONS (1)
  - Blindness [Unknown]
